FAERS Safety Report 9225168 (Version 1)
Quarter: 2013Q2

REPORT INFORMATION
  Report Type: Spontaneous
  Country: US (occurrence: None)
  Receive Date: 20130410
  Receipt Date: 20130410
  Transmission Date: 20140414
  Serious: No
  Sender: FDA-Public Use
  Company Number: None

PATIENT
  Age: 56 Year
  Sex: Female
  Weight: 83.92 kg

DRUGS (1)
  1. BOTOX [Suspect]
     Indication: MIGRAINE
     Dosage: 31 INJECTIONS Q 3 MONTHS
     Dates: start: 20121031, end: 20121031

REACTIONS (6)
  - Pain [None]
  - Crying [None]
  - Injection site swelling [None]
  - Injection site pain [None]
  - Migraine [None]
  - Product quality issue [None]
